FAERS Safety Report 9799880 (Version 1)
Quarter: 2014Q1

REPORT INFORMATION
  Report Type: Spontaneous
  Country: FR (occurrence: FR)
  Receive Date: 20140106
  Receipt Date: 20140106
  Transmission Date: 20141002
  Serious: Yes (Other)
  Sender: FDA-Public Use
  Company Number: FR-GLAXOSMITHKLINE-B0952448A

PATIENT
  Age: 2 Month
  Sex: Female
  Weight: 5.9 kg

DRUGS (1)
  1. FLIXOTIDE [Suspect]
     Indication: BRONCHIOLITIS
     Dosage: 125MCG TWICE PER DAY
     Route: 055
     Dates: start: 20131210, end: 20131218

REACTIONS (3)
  - Bronchiolitis [Unknown]
  - Wheezing [Unknown]
  - Off label use [Unknown]
